FAERS Safety Report 4693176-2 (Version None)
Quarter: 2005Q2

REPORT INFORMATION
  Report Type: 
  Country: None (occurrence: None)
  Receive Date: 20050617
  Receipt Date: 20050324
  Transmission Date: 20051028
  Serious: Yes (Other)
  Sender: FDA-Public Use
  Company Number: US-SANOFI-SYNTHELABO-A03200500848

PATIENT
  Sex: Female
  Weight: 66.2 kg

DRUGS (3)
  1. PLAVIX [Suspect]
     Indication: CORONARY ARTERIAL STENT INSERTION
     Route: 048
     Dates: start: 20040301
  2. ASPIRIN [Suspect]
     Indication: CORONARY ARTERIAL STENT INSERTION
     Route: 048
     Dates: start: 20040301, end: 20041001
  3. LIPITOR [Concomitant]
     Dosage: UNK
     Route: 048
     Dates: start: 20000101

REACTIONS (4)
  - ATRIAL FIBRILLATION [None]
  - DIASTOLIC DYSFUNCTION [None]
  - DYSPNOEA [None]
  - FLUID RETENTION [None]
